FAERS Safety Report 9807829 (Version 1)
Quarter: 2014Q1

REPORT INFORMATION
  Report Type: Spontaneous
  Country: JP (occurrence: JP)
  Receive Date: 20140110
  Receipt Date: 20140110
  Transmission Date: 20141002
  Serious: Yes (Other)
  Sender: FDA-Public Use
  Company Number: JP-TEVA-453870ISR

PATIENT
  Age: 60 Year
  Sex: Female

DRUGS (18)
  1. PREDNISOLONE [Suspect]
     Indication: RHEUMATOID ARTHRITIS
     Dosage: 5 MILLIGRAM DAILY;
     Route: 065
     Dates: start: 200407
  2. PREDNISOLONE [Suspect]
     Indication: RHEUMATOID ARTHRITIS
     Dosage: 15 MILLIGRAM DAILY;
     Route: 065
     Dates: start: 200407
  3. PREDNISOLONE [Suspect]
     Indication: POLYARTERITIS NODOSA
     Dosage: 50 MILLIGRAM DAILY;
     Route: 065
     Dates: start: 2004
  4. PREDNISOLONE [Suspect]
     Dosage: 50 MILLIGRAM DAILY;
     Route: 065
     Dates: start: 2005
  5. PREDNISOLONE [Suspect]
     Dosage: 8 MILLIGRAM DAILY;
     Route: 065
  6. PREDNISOLONE [Suspect]
     Dosage: 15 MILLIGRAM DAILY;
     Route: 065
  7. PREDNISOLONE [Suspect]
     Dosage: 20 MILLIGRAM DAILY;
     Route: 065
     Dates: start: 2011
  8. PREDNISOLONE [Suspect]
     Dosage: 5 MILLIGRAM DAILY;
     Route: 065
     Dates: start: 2011
  9. METHYLPREDNISOLONE [Suspect]
     Indication: POLYARTERITIS NODOSA
     Dosage: 500 MILLIGRAM DAILY;
     Route: 065
     Dates: start: 2004
  10. METHYLPREDNISOLONE [Suspect]
     Dosage: 500 MILLIGRAM DAILY;
     Route: 065
     Dates: start: 2005
  11. METHYLPREDNISOLONE [Suspect]
     Route: 065
     Dates: start: 2011
  12. METHOTREXATE [Suspect]
     Indication: POLYARTERITIS NODOSA
     Route: 065
     Dates: start: 2004
  13. METHOTREXATE [Suspect]
     Dosage: .8571 MILLIGRAM DAILY;
     Route: 065
     Dates: start: 2005, end: 201002
  14. MINOCYCLINE [Concomitant]
     Indication: RHEUMATOID ARTHRITIS
     Route: 065
     Dates: start: 200407
  15. LAMIVUDINE [Concomitant]
     Dosage: 100 MILLIGRAM DAILY; 100MG/DAY
     Route: 065
     Dates: start: 2004
  16. CICLOSPORIN [Concomitant]
     Indication: POLYARTERITIS NODOSA
     Dosage: 100 MILLIGRAM DAILY;
     Route: 065
     Dates: start: 2005
  17. RISEDRONIC ACID [Concomitant]
     Dosage: 2.5 MILLIGRAM DAILY;
     Route: 065
  18. ADEFOVIR [Concomitant]
     Indication: HEPATITIS B
     Dosage: 10 MILLIGRAM DAILY;
     Route: 065
     Dates: start: 200611

REACTIONS (4)
  - Lumbar vertebral fracture [Unknown]
  - Pancytopenia [Recovered/Resolved]
  - Aspartate aminotransferase increased [Recovered/Resolved]
  - Alanine aminotransferase increased [Recovered/Resolved]
